FAERS Safety Report 9190845 (Version 2)
Quarter: 2013Q1

REPORT INFORMATION
  Report Type: Report from Study
  Country: JP (occurrence: JP)
  Receive Date: 20130326
  Receipt Date: 20130326
  Transmission Date: 20140127
  Serious: Yes (Death, Hospitalization)
  Sender: FDA-Public Use
  Company Number: JP-VIIV HEALTHCARE LIMITED-B0443459A

PATIENT
  Age: 54 None
  Sex: Male

DRUGS (57)
  1. LEXIVA [Suspect]
     Indication: ACQUIRED IMMUNODEFICIENCY SYNDROME
     Dosage: 700MG TWICE PER DAY
     Route: 048
     Dates: start: 20060118, end: 20060127
  2. COMBIVIR [Suspect]
     Indication: ACQUIRED IMMUNODEFICIENCY SYNDROME
     Route: 048
     Dates: start: 20020503, end: 20051106
  3. COMBIVIR [Suspect]
     Indication: ACQUIRED IMMUNODEFICIENCY SYNDROME
     Route: 048
     Dates: start: 20060118, end: 20060127
  4. COMBIVIR [Suspect]
     Indication: ACQUIRED IMMUNODEFICIENCY SYNDROME
     Route: 048
     Dates: start: 20060314, end: 20060721
  5. COMBIVIR [Suspect]
     Indication: ACQUIRED IMMUNODEFICIENCY SYNDROME
     Route: 048
     Dates: start: 20060802, end: 20070907
  6. NORVIR [Suspect]
     Indication: ACQUIRED IMMUNODEFICIENCY SYNDROME
     Route: 048
     Dates: start: 20060118, end: 20060127
  7. FLAGYL [Suspect]
     Indication: PERIRECTAL ABSCESS
     Dosage: 250MG FOUR TIMES PER DAY
     Route: 048
     Dates: start: 20051019, end: 20051106
  8. FLAGYL [Suspect]
     Indication: PERIRECTAL ABSCESS
     Dosage: 250MG FOUR TIMES PER DAY
     Route: 048
     Dates: start: 20051122, end: 20051227
  9. STOCRIN [Concomitant]
     Indication: ACQUIRED IMMUNODEFICIENCY SYNDROME
     Route: 048
     Dates: start: 20051020, end: 20051031
  10. STOCRIN [Concomitant]
     Indication: ACQUIRED IMMUNODEFICIENCY SYNDROME
     Route: 048
     Dates: start: 20060314, end: 20080220
  11. REYATAZ [Concomitant]
     Indication: ACQUIRED IMMUNODEFICIENCY SYNDROME
     Route: 048
     Dates: start: 20040319, end: 20051019
  12. GASTER [Concomitant]
     Indication: GASTRIC ULCER
     Dosage: 10MG TWICE PER DAY
     Route: 065
     Dates: start: 20050401, end: 20051019
  13. TAKEPRON [Concomitant]
     Indication: GASTRIC ULCER
     Dosage: 30MG PER DAY
     Route: 048
     Dates: start: 20051224, end: 20060110
  14. TAKEPRON [Concomitant]
     Indication: PROPHYLAXIS AGAINST GASTROINTESTINAL ULCER
     Dosage: 30MG PER DAY
     Route: 048
     Dates: start: 20070401, end: 20080220
  15. AMARYL [Concomitant]
     Indication: DIABETES MELLITUS
     Dosage: 1MG PER DAY
     Route: 048
     Dates: start: 20050401, end: 20050623
  16. AMARYL [Concomitant]
     Indication: DIABETES MELLITUS
     Dosage: 1MG TWICE PER DAY
     Route: 048
     Dates: start: 20050624, end: 20051019
  17. AMARYL [Concomitant]
     Indication: DIABETES MELLITUS
     Dosage: 1MG TWICE PER DAY
     Route: 048
     Dates: start: 20060111, end: 20060115
  18. AMARYL [Concomitant]
     Indication: DIABETES MELLITUS
     Dosage: 3MG PER DAY
     Route: 048
     Dates: start: 20060303, end: 20071112
  19. MELBIN [Concomitant]
     Indication: DIABETES MELLITUS
     Dosage: 250MG TWICE PER DAY
     Route: 048
     Dates: start: 20060111
  20. BAKTAR [Concomitant]
     Indication: ANTIFUNGAL PROPHYLAXIS
     Dosage: 1IUAX PER DAY
     Route: 048
     Dates: start: 20051021, end: 20051106
  21. BAKTAR [Concomitant]
     Indication: ANTIFUNGAL PROPHYLAXIS
     Dosage: 1IUAX PER DAY
     Route: 048
     Dates: start: 20051201, end: 20060110
  22. CEFMETAZON [Concomitant]
     Indication: STOMA CARE
     Dosage: 1G TWICE PER DAY
     Dates: start: 20051107, end: 20051109
  23. CEFOTAX [Concomitant]
     Indication: PERIRECTAL ABSCESS
     Dosage: 1G FOUR TIMES PER DAY
     Dates: start: 20051019, end: 20051106
  24. CEFOTAX [Concomitant]
     Indication: PERIRECTAL ABSCESS
     Dosage: 1G FOUR TIMES PER DAY
     Dates: start: 20051122, end: 20051130
  25. VICCILLIN [Concomitant]
     Indication: PERIRECTAL ABSCESS
     Dosage: 1G FOUR TIMES PER DAY
     Route: 065
     Dates: start: 20051019, end: 20051106
  26. CIPROXAN [Concomitant]
     Indication: PERIRECTAL ABSCESS
     Dosage: 300MG TWICE PER DAY
     Route: 042
     Dates: start: 20051130, end: 20051213
  27. CIPROXAN [Concomitant]
     Indication: PERIRECTAL ABSCESS
     Dosage: 200MG THREE TIMES PER DAY
     Route: 048
     Dates: start: 20051214
  28. MEROPEN [Concomitant]
     Indication: PERIRECTAL ABSCESS
     Dosage: 500MG THREE TIMES PER DAY
     Route: 042
     Dates: start: 20060105, end: 20060110
  29. MEROPEN [Concomitant]
     Indication: URINARY TRACT INFECTION
     Dosage: .5G FOUR TIMES PER DAY
     Route: 042
     Dates: start: 20080130, end: 20080201
  30. DALACIN [Concomitant]
     Indication: PERIRECTAL ABSCESS
     Dosage: 300MG THREE TIMES PER DAY
     Route: 048
     Dates: start: 20060111
  31. VOLTAREN [Concomitant]
     Indication: CANCER PAIN
     Dosage: 25MG PER DAY
     Route: 065
     Dates: start: 20051224, end: 20060110
  32. CALONAL [Concomitant]
     Indication: CANCER PAIN
     Dosage: 400MG PER DAY
     Route: 065
     Dates: start: 20060220, end: 20070613
  33. DIFLUCAN [Concomitant]
     Indication: CYSTITIS
     Dosage: 100MG TWICE PER DAY
     Route: 048
     Dates: start: 20060204, end: 20060213
  34. ALEVIATIN [Concomitant]
     Indication: CONVULSION
     Dosage: 250MG TWICE PER DAY
     Route: 048
     Dates: start: 20070401, end: 20070613
  35. AMOBAN [Concomitant]
     Indication: INSOMNIA
     Dosage: 7.5MG PER DAY
     Route: 048
     Dates: start: 20070401, end: 20070624
  36. VOLTAREN SR [Concomitant]
     Indication: CANCER PAIN
     Dosage: 37.5MG TWICE PER DAY
     Route: 048
     Dates: start: 20070401, end: 20070530
  37. BENAMBAX [Concomitant]
     Indication: ANTIFUNGAL PROPHYLAXIS
     Dosage: 300MG IN THE MORNING
     Route: 055
     Dates: start: 20070401, end: 200803
  38. OXYCONTIN [Concomitant]
     Indication: CANCER PAIN
     Dosage: 20MG TWICE PER DAY
     Route: 048
     Dates: start: 20070401, end: 20070614
  39. OXYCONTIN [Concomitant]
     Indication: CANCER PAIN
     Dosage: 5MG TWICE PER DAY
     Route: 048
     Dates: start: 20070517, end: 20070530
  40. OXYCONTIN [Concomitant]
     Indication: CANCER PAIN
     Dosage: 10MG TWICE PER DAY
     Route: 048
     Dates: start: 20070530, end: 20070614
  41. OXYCONTIN [Concomitant]
     Indication: CANCER PAIN
     Dosage: 10MG TWICE PER DAY
     Route: 048
     Dates: start: 20070803, end: 20070808
  42. OXYCONTIN [Concomitant]
     Indication: CANCER PAIN
     Dosage: 10MG THREE TIMES PER DAY
     Route: 048
     Dates: start: 20070809, end: 20071221
  43. OXYCONTIN [Concomitant]
     Indication: CANCER PAIN
     Dosage: 10MG TWICE PER DAY
     Route: 048
     Dates: start: 20071222, end: 20080114
  44. OXYCONTIN [Concomitant]
     Indication: CANCER PAIN
     Dosage: 5MG TWICE PER DAY
     Route: 048
     Dates: start: 20080115, end: 20080121
  45. AZACTAM [Concomitant]
     Indication: URINARY TRACT INFECTION
     Dosage: 1G TWICE PER DAY
     Dates: start: 20080203, end: 20080213
  46. ARGAMATE [Concomitant]
     Indication: HYPERKALAEMIA
     Dosage: 25G TWICE PER DAY
     Route: 048
     Dates: start: 20070531, end: 20080220
  47. DUROTEP [Concomitant]
     Indication: CANCER PAIN
     Dosage: 2.5MG PER DAY
     Route: 062
     Dates: start: 20070606, end: 20070627
  48. DUROTEP [Concomitant]
     Indication: CANCER PAIN
     Dosage: 5MG PER DAY
     Route: 062
     Dates: start: 20070628, end: 20080107
  49. DUROTEP [Concomitant]
     Indication: CANCER PAIN
     Dosage: 2.5MG PER DAY
     Route: 062
     Dates: start: 20070825, end: 20080117
  50. DUROTEP [Concomitant]
     Indication: CANCER PAIN
     Dosage: 10MG PER DAY
     Route: 062
     Dates: start: 20080118, end: 20080404
  51. MAGMITT [Concomitant]
     Indication: CONSTIPATION PROPHYLAXIS
     Dosage: 660MG THREE TIMES PER DAY
     Route: 048
     Dates: start: 20070618, end: 20070911
  52. BASEN [Concomitant]
     Indication: DIABETES MELLITUS
     Dosage: .2MG THREE TIMES PER DAY
     Route: 048
     Dates: start: 20070821, end: 20071003
  53. ZIAGEN [Concomitant]
     Indication: ACQUIRED IMMUNODEFICIENCY SYNDROME
     Dosage: 600MG PER DAY
     Route: 048
     Dates: start: 20070908, end: 20080220
  54. EPIVIR [Concomitant]
     Indication: ACQUIRED IMMUNODEFICIENCY SYNDROME
     Dosage: 150MG TWICE PER DAY
     Route: 048
     Dates: start: 19980528, end: 19980606
  55. EPIVIR [Concomitant]
     Indication: ACQUIRED IMMUNODEFICIENCY SYNDROME
     Dosage: 150MG TWICE PER DAY
     Route: 048
     Dates: start: 19980614, end: 19980629
  56. EPIVIR [Concomitant]
     Indication: ACQUIRED IMMUNODEFICIENCY SYNDROME
     Dosage: 150MG TWICE PER DAY
     Route: 048
     Dates: start: 19980730, end: 19991031
  57. EPIVIR [Concomitant]
     Indication: ACQUIRED IMMUNODEFICIENCY SYNDROME
     Route: 048
     Dates: start: 19991101, end: 20020502

REACTIONS (6)
  - Rash [Recovered/Resolved]
  - Anaemia [Not Recovered/Not Resolved]
  - Rectal cancer [Fatal]
  - Diarrhoea [None]
  - Perirectal abscess [None]
  - Convulsion [None]
